FAERS Safety Report 4292526-9 (Version None)
Quarter: 2004Q1

REPORT INFORMATION
  Report Type: 
  Country: None (occurrence: None)
  Receive Date: 20040211
  Receipt Date: 20031121
  Transmission Date: 20041129
  Serious: Yes (Other)
  Sender: FDA-Public Use
  Company Number: FR-BRISTOL-MYERS SQUIBB COMPANY-12442711

PATIENT
  Sex: Female

DRUGS (1)
  1. TAXOL [Suspect]
     Indication: BREAST CANCER
     Dosage: PACLITAXEL WEEKLY FOR ABOUT THREE MONTHS
     Route: 042
     Dates: start: 20030101

REACTIONS (1)
  - TOXIC SKIN ERUPTION [None]
